FAERS Safety Report 8449328-9 (Version None)
Quarter: 2012Q2

REPORT INFORMATION
  Report Type: 
  Country: None (occurrence: None)
  Receive Date: 20120619
  Receipt Date: 20120613
  Transmission Date: 20120825
  Serious: Yes (Hospitalization, Other)
  Sender: FDA-Public Use
  Company Number: SE-PFIZER INC-2012142125

PATIENT
  Age: 33 Year
  Sex: Male

DRUGS (11)
  1. CYMBALTA [Concomitant]
     Dosage: UNK
  2. VENLAFAXINE [Concomitant]
  3. METOPROLOL [Concomitant]
     Dosage: UNK
  4. LERGIGAN MITE [Concomitant]
     Dosage: UNK
  5. DIAZEPAM [Concomitant]
     Dosage: UNK
  6. PLENDIL [Concomitant]
     Dosage: UNK
  7. ORALOVITE [Concomitant]
     Dosage: UNK
  8. TRAMADOL [Concomitant]
  9. LYRICA [Suspect]
     Dosage: 3 G, 1X/DAY
     Route: 048
  10. NOZINAN [Concomitant]
     Dosage: UNK
  11. ZOPICLONE [Concomitant]
     Dosage: UNK

REACTIONS (7)
  - DRUG TOLERANCE INCREASED [None]
  - HALLUCINATION, VISUAL [None]
  - DRUG ABUSE [None]
  - ANXIETY [None]
  - SUICIDAL IDEATION [None]
  - MYOCLONUS [None]
  - WITHDRAWAL SYNDROME [None]
